FAERS Safety Report 25699529 (Version 1)
Quarter: 2025Q3

REPORT INFORMATION
  Report Type: Spontaneous
  Country: AU (occurrence: AU)
  Receive Date: 20250819
  Receipt Date: 20250819
  Transmission Date: 20251021
  Serious: Yes (Other)
  Sender: ROCHE
  Company Number: AU-ROCHE-10000362179

PATIENT
  Sex: Male
  Weight: 83 kg

DRUGS (3)
  1. ZELBORAF [Suspect]
     Active Substance: VEMURAFENIB
     Indication: Hairy cell leukaemia
     Dosage: FOR 8 WEEKS
     Route: 048
  2. RITUXIMAB [Suspect]
     Active Substance: RITUXIMAB
     Indication: Hairy cell leukaemia
     Route: 048
  3. RITUXIMAB [Suspect]
     Active Substance: RITUXIMAB
     Route: 065
     Dates: start: 202105

REACTIONS (2)
  - Off label use [Unknown]
  - Hairy cell leukaemia recurrent [Unknown]
